FAERS Safety Report 14110703 (Version 1)
Quarter: 2017Q4

REPORT INFORMATION
  Report Type: Spontaneous
  Country: US (occurrence: None)
  Receive Date: 20171019
  Receipt Date: 20171019
  Transmission Date: 20180321
  Serious: Yes (Death)
  Sender: FDA-Public Use
  Company Number: None

PATIENT
  Age: 80 Year
  Sex: Male
  Weight: 79.7 kg

DRUGS (11)
  1. ALLOPURINOL. [Concomitant]
     Active Substance: ALLOPURINOL
  2. ONDANSETRON [Concomitant]
     Active Substance: ONDANSETRON
  3. HYDROMORPHONE [Concomitant]
     Active Substance: HYDROMORPHONE
  4. LOVASTATIN. [Concomitant]
     Active Substance: LOVASTATIN
  5. ALBUTEROL. [Concomitant]
     Active Substance: ALBUTEROL
  6. DEXTROMETHORPHAN-GUAIFENESIN [Concomitant]
     Active Substance: DEXTROMETHORPHAN\GUAIFENESIN
  7. ACETAMINOPHEN. [Concomitant]
     Active Substance: ACETAMINOPHEN
  8. MORPHINE [Concomitant]
     Active Substance: MORPHINE
  9. METOPROLOL SUCCINATE. [Concomitant]
     Active Substance: METOPROLOL SUCCINATE
  10. TIOTROPIUM BROMIDE [Concomitant]
     Active Substance: TIOTROPIUM BROMIDE
  11. APIXABAN [Suspect]
     Active Substance: APIXABAN
     Indication: DEEP VEIN THROMBOSIS
     Route: 048
     Dates: start: 20170921, end: 20170927

REACTIONS (2)
  - Urosepsis [None]
  - Mental status changes [None]

NARRATIVE: CASE EVENT DATE: 20171018
